FAERS Safety Report 20409006 (Version 1)
Quarter: 2022Q1

REPORT INFORMATION
  Report Type: Report from Study
  Country: US (occurrence: US)
  Receive Date: 20220201
  Receipt Date: 20220201
  Transmission Date: 20220423
  Serious: Yes (Death, Other)
  Sender: FDA-Public Use
  Company Number: US-GILEAD-2022-0567468

PATIENT
  Age: 20 Year
  Sex: Male

DRUGS (2)
  1. AZTREONAM LYSINE [Suspect]
     Active Substance: AZTREONAM LYSINE
     Indication: Cystic fibrosis
     Dosage: 75 MG, TID ALTERNATE 28 DAYS ON CAYSTON AND THEN 28 DAYS ON COLISTIN
     Route: 055
     Dates: start: 201505
  2. COLISTIN [Concomitant]
     Active Substance: COLISTIN

REACTIONS (1)
  - Death [Fatal]
